FAERS Safety Report 9524729 (Version 2)
Quarter: 2013Q4

REPORT INFORMATION
  Report Type: Spontaneous
  Country: US (occurrence: US)
  Receive Date: 20130916
  Receipt Date: 20131111
  Transmission Date: 20140711
  Serious: Yes (Hospitalization, Other)
  Sender: FDA-Public Use
  Company Number: PHEH2013US019313

PATIENT
  Age: 92 Year
  Sex: Female

DRUGS (4)
  1. EXELON PATCH [Suspect]
     Indication: DEMENTIA ALZHEIMER^S TYPE
     Dosage: 9.5 MG, DAILY
     Route: 062
  2. EXELON PATCH [Suspect]
     Dosage: 4.6 MG, DAILY
     Route: 062
  3. INSULIN LENTE [Concomitant]
     Dosage: UNK UKN, UNK
     Route: 058
  4. LISINOPRIL [Concomitant]
     Dosage: UNK UKN, UNK
     Route: 048

REACTIONS (2)
  - Hypoglycaemia [Recovering/Resolving]
  - Fall [Not Recovered/Not Resolved]
